FAERS Safety Report 9411744 (Version 1)
Quarter: 2013Q3

REPORT INFORMATION
  Report Type: Spontaneous
  Country: US (occurrence: None)
  Receive Date: 20130719
  Receipt Date: 20130719
  Transmission Date: 20140515
  Serious: Yes (Life-Threatening, Hospitalization)
  Sender: FDA-Public Use
  Company Number: None

PATIENT
  Sex: Female

DRUGS (1)
  1. WARFARIN [Suspect]
     Indication: AORTIC VALVE REPLACEMENT
     Dates: start: 2001

REACTIONS (7)
  - Transient ischaemic attack [None]
  - Product substitution issue [None]
  - Drug tolerance increased [None]
  - Cerebrovascular accident [None]
  - Unevaluable event [None]
  - Coagulopathy [None]
  - Disease recurrence [None]
